FAERS Safety Report 8189636-2 (Version None)
Quarter: 2012Q1

REPORT INFORMATION
  Report Type: 
  Country: None (occurrence: None)
  Receive Date: 20120307
  Receipt Date: 20120302
  Transmission Date: 20120608
  Serious: Yes (Death)
  Sender: FDA-Public Use
  Company Number: US-CELGENEUS-163-21880-12020710

PATIENT
  Sex: Female

DRUGS (6)
  1. REVLIMID [Suspect]
     Dosage: 15 MILLIGRAM
     Route: 048
     Dates: start: 20090304, end: 20101231
  2. PROCRIT [Concomitant]
     Dosage: 40,000
     Route: 065
     Dates: start: 20090930, end: 20110629
  3. IMMUNE GLOBULIN INTRAVENOUS (HUMAN) [Concomitant]
     Indication: MULTIPLE MYELOMA
     Route: 041
     Dates: start: 20110907, end: 20111207
  4. ZOMETA [Concomitant]
     Route: 065
     Dates: start: 20100315, end: 20110209
  5. REVLIMID [Suspect]
     Indication: MULTIPLE MYELOMA
     Dosage: 25 MILLIGRAM
     Route: 048
     Dates: start: 20080501, end: 20090101
  6. NPLATE [Concomitant]
     Route: 065
     Dates: start: 20110225, end: 20110722

REACTIONS (1)
  - CARDIAC ARREST [None]
